FAERS Safety Report 17073871 (Version 1)
Quarter: 2019Q4

REPORT INFORMATION
  Report Type: Spontaneous
  Country: US (occurrence: US)
  Receive Date: 20191126
  Receipt Date: 20191126
  Transmission Date: 20200122
  Serious: No
  Sender: FDA-Public Use
  Company Number: US-ALVOGEN-2019-ALVOGEN-100382

PATIENT
  Age: 63 Year
  Sex: Female
  Weight: 104.33 kg

DRUGS (2)
  1. LOSARTAN. [Concomitant]
     Active Substance: LOSARTAN
     Indication: HYPERTENSION
  2. LISINOPRIL. [Suspect]
     Active Substance: LISINOPRIL
     Indication: HYPERTENSION

REACTIONS (4)
  - Sneezing [Recovered/Resolved]
  - Drug intolerance [Unknown]
  - Drug hypersensitivity [Unknown]
  - Cough [Recovered/Resolved]
